FAERS Safety Report 21138769 (Version 1)
Quarter: 2022Q3

REPORT INFORMATION
  Report Type: Spontaneous
  Country: US (occurrence: US)
  Receive Date: 20220727
  Receipt Date: 20220727
  Transmission Date: 20221027
  Serious: Yes (Other)
  Sender: FDA-Public Use
  Company Number: US-MYLANLABS-2022M1080580

PATIENT
  Age: 40 Year
  Sex: Male

DRUGS (3)
  1. FENTANYL TRANSDERMAL SYSTEM [Suspect]
     Active Substance: FENTANYL
     Indication: Sedation
     Dosage: UNK
     Route: 065
  2. MIDAZOLAM [Concomitant]
     Active Substance: MIDAZOLAM
     Indication: Anxiety
     Dosage: 1 MILLIGRAM
     Route: 065
  3. PROPOFOL [Concomitant]
     Active Substance: PROPOFOL
     Dosage: 50 MILLIGRAM
     Route: 065

REACTIONS (2)
  - Cardiac arrest [Unknown]
  - Off label use [Unknown]
